FAERS Safety Report 13709911 (Version 1)
Quarter: 2017Q3

REPORT INFORMATION
  Report Type: Spontaneous
  Country: GB (occurrence: GB)
  Receive Date: 20170703
  Receipt Date: 20170703
  Transmission Date: 20171127
  Serious: Yes (Hospitalization)
  Sender: FDA-Public Use
  Company Number: GB-JNJFOC-20170620012

PATIENT
  Age: 79 Year
  Sex: Male
  Weight: 104.3 kg

DRUGS (10)
  1. TRAMADOL. [Concomitant]
     Active Substance: TRAMADOL
     Indication: PRODUCT USED FOR UNKNOWN INDICATION
     Dosage: 50 DOSES
     Route: 065
  2. SERETIDE [Concomitant]
     Active Substance: FLUTICASONE PROPIONATE\SALMETEROL XINAFOATE
     Indication: PRODUCT USED FOR UNKNOWN INDICATION
     Dosage: 2 DOSES
     Route: 065
  3. DUTASTERIDE. [Concomitant]
     Active Substance: DUTASTERIDE
     Indication: PRODUCT USED FOR UNKNOWN INDICATION
     Dosage: 500 DOSES (UNIT UNSPECIFIED), MORNING
     Route: 065
  4. TAZOBACTAM [Concomitant]
     Active Substance: TAZOBACTAM
     Indication: ABDOMINAL INFECTION
     Route: 065
     Dates: start: 201706
  5. TAMSULOSIN [Concomitant]
     Active Substance: TAMSULOSIN
     Indication: PRODUCT USED FOR UNKNOWN INDICATION
     Dosage: 400 DOSES, MORNING
     Route: 065
  6. IBUPROFEN. [Suspect]
     Active Substance: IBUPROFEN
     Indication: MUSCULOSKELETAL PAIN
     Dosage: 400 DOSES (UNIT UNSPECIFIED); CUMULATIVE DOSE TO FIRST REACTION: 1200 (UNIT UNSPECIFIED)
     Route: 065
     Dates: start: 20170611, end: 20170612
  7. SALBUTAMOL [Concomitant]
     Active Substance: ALBUTEROL
     Indication: PRODUCT USED FOR UNKNOWN INDICATION
     Dosage: 100 DOSES (UNIT UNSPECIFIED) ONE OR TWO PUFF FOUR TIMES DAY
     Route: 065
  8. PIPERACILLIN [Concomitant]
     Active Substance: PIPERACILLIN
     Indication: ABDOMINAL INFECTION
     Route: 065
     Dates: start: 201706
  9. IBUPROFEN. [Suspect]
     Active Substance: IBUPROFEN
     Route: 065
  10. CODEINE [Suspect]
     Active Substance: CODEINE
     Indication: PRODUCT USED FOR UNKNOWN INDICATION
     Dosage: RECOMMENDATION TO STOP OR REDUCE TO 30MG UP TO 4 TIMES A DAY WHEN REQUIRED
     Route: 065
     Dates: start: 20170611

REACTIONS (1)
  - Acute kidney injury [Recovering/Resolving]

NARRATIVE: CASE EVENT DATE: 20170612
